FAERS Safety Report 8444860-6 (Version None)
Quarter: 2012Q2

REPORT INFORMATION
  Report Type: 
  Country: None (occurrence: None)
  Receive Date: 20120618
  Receipt Date: 20120613
  Transmission Date: 20120825
  Serious: Yes (Hospitalization, Other)
  Sender: FDA-Public Use
  Company Number: PHEH2012US005435

PATIENT
  Sex: Female
  Weight: 81 kg

DRUGS (18)
  1. COZAAR [Concomitant]
     Dosage: 50 MG, BID
     Route: 048
  2. BACLOFEN [Concomitant]
     Dosage: 5 MG, 5QD
  3. RESTASIS [Concomitant]
     Route: 047
  4. LASIX [Concomitant]
     Dosage: 20 MG, PRN
  5. GILENYA [Suspect]
     Dosage: 0.5 MG, QD
     Route: 048
     Dates: start: 20120524
  6. ZOCOR [Concomitant]
     Dosage: 20 MG, QD
  7. TOVIAZ [Concomitant]
     Dosage: 8 UG, QD
  8. PAXIL [Concomitant]
     Dosage: 20 MG, QD
  9. COLACE [Concomitant]
     Dosage: 100 MG, QD
  10. GAVISCON [Concomitant]
     Dosage: SODIUM ALGINATE 8 MG/ SODIUM BICARBONATE 5 ML
  11. VITAMIN D [Concomitant]
     Dosage: 200 U, QD
  12. VITAMIN E [Concomitant]
     Dosage: 200 U, QD
  13. MULTI-VITAMINS [Concomitant]
     Dosage: UNK UKN, UNK
     Route: 048
  14. PROVIGIL [Concomitant]
     Dosage: 100 MG, QD
     Route: 048
  15. GILENYA [Suspect]
     Indication: MULTIPLE SCLEROSIS
     Dosage: 0.5 MG, QD
     Route: 048
     Dates: start: 20120307, end: 20120520
  16. ASPIRIN [Concomitant]
     Dosage: 81 MG, QD
     Route: 048
  17. VITAMIN B-12 [Concomitant]
     Dosage: 500 UG, QD
  18. CALCIUM WITH VITAMIN D [Concomitant]
     Dosage: 600 MG / 200 MG, DAILY

REACTIONS (8)
  - BRADYCARDIA [None]
  - WHEEZING [None]
  - GASTROOESOPHAGEAL REFLUX DISEASE [None]
  - NAUSEA [None]
  - DYSPNOEA [None]
  - CHEST PAIN [None]
  - HYPERTENSION [None]
  - DIZZINESS [None]
